FAERS Safety Report 13472425 (Version 1)
Quarter: 2017Q2

REPORT INFORMATION
  Report Type: Spontaneous
  Country: US (occurrence: US)
  Receive Date: 20170423
  Receipt Date: 20170423
  Transmission Date: 20170830
  Serious: Yes (Disabling)
  Sender: FDA-Public Use
  Company Number: None

PATIENT
  Age: 32 Year
  Sex: Female
  Weight: 60.75 kg

DRUGS (4)
  1. ACTIVATED CHARCOAL [Concomitant]
     Active Substance: ACTIVATED CHARCOAL
  2. ONABOTULINMTOXIN A [Suspect]
     Active Substance: ONABOTULINUMTOXINA
     Indication: SKIN WRINKLING
     Dosage: ?          OTHER STRENGTH:MOUSE UNITS;QUANTITY:1 INJECTION(S);?
     Route: 030
     Dates: start: 20170106
  3. VITAMINS [Concomitant]
     Active Substance: VITAMINS
  4. ECHINACEA [Concomitant]
     Active Substance: ECHINACEA, UNSPECIFIED

REACTIONS (8)
  - Vertigo [None]
  - Depersonalisation/derealisation disorder [None]
  - Anxiety [None]
  - Confusional state [None]
  - Throat tightness [None]
  - Head discomfort [None]
  - Dizziness [None]
  - Paraesthesia [None]

NARRATIVE: CASE EVENT DATE: 20170121
